FAERS Safety Report 20804457 (Version 2)
Quarter: 2022Q4

REPORT INFORMATION
  Report Type: Report from Study
  Country: US (occurrence: None)
  Receive Date: 20220509
  Receipt Date: 20221006
  Transmission Date: 20230113
  Serious: Yes (Other)
  Sender: FDA-Public Use
  Company Number: US-Merck Healthcare KGaA-9318417

PATIENT
  Age: 32 Year
  Sex: Female

DRUGS (2)
  1. MAVENCLAD [Suspect]
     Active Substance: CLADRIBINE
     Indication: Multiple sclerosis
     Dosage: YEAR ONE MONTH ONE THERAPY
     Route: 048
     Dates: start: 20210820
  2. MAVENCLAD [Suspect]
     Active Substance: CLADRIBINE
     Dosage: YEAR ONE MONTH TWO THERAPY
     Route: 048

REACTIONS (5)
  - Pneumonia [Recovered/Resolved]
  - Upper respiratory tract infection [Unknown]
  - Conjunctivitis [Unknown]
  - Ear infection [Unknown]
  - Herpes zoster [Unknown]

NARRATIVE: CASE EVENT DATE: 20211001
